FAERS Safety Report 4338505-4 (Version None)
Quarter: 2004Q2

REPORT INFORMATION
  Report Type: 
  Country: None (occurrence: None)
  Receive Date: 20040414
  Receipt Date: 20040402
  Transmission Date: 20050107
  Serious: Yes (Other)
  Sender: FDA-Public Use
  Company Number: GB-GLAXOSMITHKLINE-B0329062A

PATIENT
  Age: 61 Year
  Sex: Female
  Weight: 56.8 kg

DRUGS (5)
  1. SALMETEROL [Suspect]
     Indication: CHRONIC OBSTRUCTIVE AIRWAYS DISEASE
     Dosage: 100MCG UNKNOWN
     Dates: start: 20031023, end: 20040101
  2. BECLOMETHASONE DIPROPIONATE [Concomitant]
     Indication: CHRONIC OBSTRUCTIVE AIRWAYS DISEASE
     Dosage: 1MG PER DAY
  3. VENTOLIN [Concomitant]
     Indication: CHRONIC OBSTRUCTIVE AIRWAYS DISEASE
     Dosage: 500MCG PER DAY
  4. RISEDRONATE [Concomitant]
     Route: 048
  5. PREDNISOLONE [Concomitant]
     Indication: CHRONIC OBSTRUCTIVE AIRWAYS DISEASE
     Dosage: 5MG PER DAY
     Route: 048
     Dates: start: 20031201

REACTIONS (1)
  - VISUAL DISTURBANCE [None]
